FAERS Safety Report 24869236 (Version 1)
Quarter: 2025Q1

REPORT INFORMATION
  Report Type: Spontaneous
  Country: US (occurrence: US)
  Receive Date: 20250121
  Receipt Date: 20250121
  Transmission Date: 20250408
  Serious: No
  Sender: PFIZER
  Company Number: US-PFIZER INC-202500014235

PATIENT
  Age: 21 Year
  Sex: Male

DRUGS (4)
  1. LITFULO [Suspect]
     Active Substance: RITLECITINIB TOSYLATE
     Indication: Alopecia universalis
     Dates: start: 20240531
  2. MINOXIDIL [Concomitant]
     Active Substance: MINOXIDIL
  3. MINOXIDIL [Concomitant]
     Active Substance: MINOXIDIL
  4. DOXYCYCLINE HYCLATE [Concomitant]
     Active Substance: DOXYCYCLINE HYCLATE

REACTIONS (2)
  - Drug ineffective [Unknown]
  - Product dose omission issue [Unknown]
